FAERS Safety Report 10015792 (Version 2)
Quarter: 2014Q2

REPORT INFORMATION
  Report Type: Spontaneous
  Country: US (occurrence: US)
  Receive Date: 20140317
  Receipt Date: 20140508
  Transmission Date: 20141212
  Serious: Yes (Hospitalization, Other)
  Sender: FDA-Public Use
  Company Number: US-CELGENEUS-163-21660-14031057

PATIENT
  Age: 56 Year
  Sex: Female

DRUGS (5)
  1. ABRAXANE [Suspect]
     Indication: BREAST CANCER METASTATIC
     Route: 065
  2. ABRAXANE [Suspect]
     Route: 065
  3. ABRAXANE [Suspect]
     Route: 065
     Dates: end: 20131025
  4. TAMOXIFEN [Concomitant]
     Indication: PRODUCT USED FOR UNKNOWN INDICATION
     Route: 065
  5. AREDIA [Concomitant]
     Indication: PRODUCT USED FOR UNKNOWN INDICATION
     Route: 065

REACTIONS (4)
  - VIIth nerve paralysis [Recovering/Resolving]
  - Urinary tract infection [Unknown]
  - Urosepsis [Unknown]
  - Neuropathy peripheral [Unknown]
